FAERS Safety Report 12916774 (Version 1)
Quarter: 2016Q4

REPORT INFORMATION
  Report Type: Spontaneous
  Country: US (occurrence: US)
  Receive Date: 20161102
  Receipt Date: 20161102
  Transmission Date: 20170207
  Serious: Yes (Other)
  Sender: FDA-Public Use
  Company Number: None

PATIENT
  Age: 78 Year
  Sex: Male
  Weight: 131 kg

DRUGS (1)
  1. TRI-MOXI IMPRIMIS [Suspect]
     Active Substance: MOXIFLOXACIN\TRIAMCINOLONE
     Dosage: ?          OTHER FREQUENCY:ONCE;?
     Route: 031
     Dates: start: 20150501, end: 20161014

REACTIONS (1)
  - Endophthalmitis [None]

NARRATIVE: CASE EVENT DATE: 20161014
